FAERS Safety Report 21563703 (Version 6)
Quarter: 2024Q4

REPORT INFORMATION
  Report Type: Report from Study
  Country: US (occurrence: US)
  Receive Date: 20221108
  Receipt Date: 20241211
  Transmission Date: 20250114
  Serious: Yes (Other)
  Sender: TAKEDA
  Company Number: US-TAKEDA-US201942933

PATIENT
  Sex: Male

DRUGS (2)
  1. HUMAN IMMUNOGLOBULIN G [Suspect]
     Active Substance: HUMAN IMMUNOGLOBULIN G
     Indication: Primary immunodeficiency syndrome
     Dosage: UNK
  2. HUMAN IMMUNOGLOBULIN G [Suspect]
     Active Substance: HUMAN IMMUNOGLOBULIN G
     Indication: Hypogammaglobulinaemia
     Dosage: 4 GRAM, MONTHLY

REACTIONS (14)
  - Autism spectrum disorder [Unknown]
  - Gastrointestinal stromal tumour [Unknown]
  - Glaucoma [Unknown]
  - Inappropriate schedule of product administration [Unknown]
  - Bone neoplasm [Unknown]
  - Fear of injection [Unknown]
  - Nasopharyngitis [Unknown]
  - COVID-19 [Unknown]
  - Infusion site discharge [Unknown]
  - Blood iron decreased [Unknown]
  - Epistaxis [Unknown]
  - Pain [Unknown]
  - Tremor [Unknown]
  - Infusion site pain [Unknown]
